FAERS Safety Report 9990719 (Version 1)
Quarter: 2014Q1

REPORT INFORMATION
  Report Type: Spontaneous
  Country: US (occurrence: None)
  Receive Date: 20140307
  Receipt Date: 20140307
  Transmission Date: 20141002
  Serious: Yes (Hospitalization)
  Sender: FDA-Public Use
  Company Number: None

PATIENT
  Sex: Male
  Weight: 121.7 kg

DRUGS (2)
  1. LORAZEPAM [Suspect]
     Indication: ANXIETY
     Dosage: 1 MG PRN PO
     Route: 048
     Dates: start: 20100120, end: 20130822
  2. OXYCODONE [Suspect]
     Indication: PAIN
     Route: 048
     Dates: start: 20120111, end: 20130813

REACTIONS (3)
  - Sedation [None]
  - Respiratory depression [None]
  - Depressed level of consciousness [None]
